FAERS Safety Report 7228169-4 (Version None)
Quarter: 2011Q1

REPORT INFORMATION
  Report Type: 
  Country: None (occurrence: None)
  Receive Date: 20110114
  Receipt Date: 20110104
  Transmission Date: 20110831
  Serious: Yes (Hospitalization)
  Sender: FDA-Public Use
  Company Number: ES-PFIZER INC-2011008160

PATIENT
  Age: 82 Year
  Sex: Male

DRUGS (5)
  1. TRANGOREX [Suspect]
     Indication: PRODUCT USED FOR UNKNOWN INDICATION
     Dosage: 200 MG TABLET, DAILY DOSE UNKNOWN
     Route: 048
     Dates: start: 20100101, end: 20100928
  2. BARNIDIPINE [Concomitant]
  3. SINTROM [Concomitant]
     Dosage: UNK
     Dates: end: 20100928
  4. COD EFFERALGAN [Concomitant]
  5. SUTRIL [Concomitant]

REACTIONS (1)
  - ATRIAL FIBRILLATION [None]
